FAERS Safety Report 5494576-3 (Version None)
Quarter: 2007Q4

REPORT INFORMATION
  Report Type: 
  Country: None (occurrence: None)
  Receive Date: 20071024
  Receipt Date: 20071012
  Transmission Date: 20080405
  Serious: Yes (Hospitalization)
  Sender: FDA-Public Use
  Company Number: CA-ELI_LILLY_AND_COMPANY-CA200710000820

PATIENT
  Age: 79 Year
  Sex: Female

DRUGS (12)
  1. FORTEO [Suspect]
     Indication: OSTEOPOROSIS
     Dosage: 20 UG, DAILY (1/D)
     Route: 058
     Dates: start: 20070903
  2. TYLENOL /USA/ [Concomitant]
     Dosage: 25 MG, 2/D
  3. VITAMIN D [Concomitant]
     Dosage: UNK, DAILY (1/D)
  4. CYCLOBENZAPRINE HCL [Concomitant]
     Dosage: 5 MG, UNK
  5. COZAAR [Concomitant]
     Dosage: 50 MG, EACH EVENING
  6. MIRALAX [Concomitant]
     Dosage: UNK, DAILY (1/D)
  7. SENOKOT [Concomitant]
     Dosage: UNK, 2/D
  8. REGLAN [Concomitant]
     Dosage: UNK, DAILY (1/D)
  9. K-TAB [Concomitant]
  10. OYSTER SHELL CALCIUM WITH VITAMIN D/01675501/ [Concomitant]
     Dosage: 5 MG, UNK
  11. CIPRO [Concomitant]
     Dosage: 5 MG, 2/D
  12. DURAGESIC-100 [Concomitant]
     Dosage: 12 MG, UNK
     Route: 061

REACTIONS (2)
  - PAIN [None]
  - SPINAL COMPRESSION FRACTURE [None]
